FAERS Safety Report 8140523-5 (Version None)
Quarter: 2012Q1

REPORT INFORMATION
  Report Type: 
  Country: None (occurrence: None)
  Receive Date: 20120216
  Receipt Date: 20120209
  Transmission Date: 20120608
  Serious: Yes (Other)
  Sender: FDA-Public Use
  Company Number: US-CELGENEUS-163-21880-12012186

PATIENT
  Sex: Female
  Weight: 51.7 kg

DRUGS (5)
  1. REVLIMID [Suspect]
     Indication: MULTIPLE MYELOMA
     Dosage: 25 MILLIGRAM
     Route: 048
     Dates: start: 20111005
  2. CENTRUM [Concomitant]
     Route: 065
  3. SYNTHROID [Concomitant]
     Route: 065
  4. LIPITOR [Concomitant]
     Route: 065
  5. CALCIUM + VITAMIN D [Concomitant]
     Route: 065

REACTIONS (1)
  - DEAFNESS [None]
